FAERS Safety Report 7230474-2 (Version None)
Quarter: 2011Q1

REPORT INFORMATION
  Report Type: 
  Country: None (occurrence: None)
  Receive Date: 20110118
  Receipt Date: 20101220
  Transmission Date: 20110831
  Serious: Yes (Hospitalization)
  Sender: FDA-Public Use
  Company Number: US-NOVOPROD-320395

PATIENT
  Sex: Male
  Weight: 181.41 kg

DRUGS (13)
  1. SYNTHROID [Concomitant]
     Indication: HYPOTHYROIDISM
     Dosage: 0.075 MG, QD
     Route: 048
  2. VICTOZA [Suspect]
     Indication: TYPE 2 DIABETES MELLITUS
     Dosage: 1.2 MG, QD
     Route: 058
     Dates: start: 20100101
  3. AZMACORT [Concomitant]
     Indication: ASTHMA
     Dosage: UNK
     Route: 055
  4. LIPITOR [Concomitant]
     Indication: HYPERLIPIDAEMIA
     Dosage: UNK
  5. METFORMIN [Concomitant]
     Indication: TYPE 2 DIABETES MELLITUS
     Dosage: 850 MG, TID
     Route: 048
  6. GLIPIZIDE [Concomitant]
     Indication: TYPE 2 DIABETES MELLITUS
     Dosage: 10 MG, BID
     Route: 048
  7. ACTOS [Concomitant]
     Indication: TYPE 2 DIABETES MELLITUS
     Dosage: UNK
     Route: 048
  8. DIGOXIN [Concomitant]
     Indication: CARDIAC DISORDER
     Dosage: UNK
  9. DILTIAZEM [Concomitant]
     Indication: HEART RATE IRREGULAR
     Dosage: UNK
     Route: 048
  10. BECONASE [Concomitant]
     Indication: ASTHMA
     Dosage: UNK
     Route: 055
  11. HYDROCHLOROTHIAZIDE [Concomitant]
     Indication: HYPERTENSION
     Dosage: UNK
     Route: 048
  12. XOPENEX [Concomitant]
     Indication: ASTHMA
     Dosage: UNK
     Route: 055
  13. LISINOPRIL [Concomitant]
     Indication: CARDIAC DISORDER
     Dosage: UNK
     Route: 048

REACTIONS (1)
  - THYROID NEOPLASM [None]
